FAERS Safety Report 24212561 (Version 2)
Quarter: 2025Q1

REPORT INFORMATION
  Report Type: Report from Study
  Country: NZ (occurrence: NZ)
  Receive Date: 20240815
  Receipt Date: 20250115
  Transmission Date: 20250409
  Serious: Yes (Other)
  Sender: ROCHE
  Company Number: NZ-ROCHE-10000025482

PATIENT

DRUGS (2)
  1. RITUXIMAB [Suspect]
     Active Substance: RITUXIMAB
     Indication: Diffuse large B-cell lymphoma
     Route: 065
  2. GLOFITAMAB [Suspect]
     Active Substance: GLOFITAMAB
     Indication: Diffuse large B-cell lymphoma
     Route: 065

REACTIONS (1)
  - Therapy non-responder [Unknown]
